FAERS Safety Report 12897481 (Version 1)
Quarter: 2016Q4

REPORT INFORMATION
  Report Type: Not Available
  Country: BR (occurrence: BR)
  Receive Date: 20161031
  Receipt Date: 20161031
  Transmission Date: 20170207
  Serious: Yes (Hospitalization)
  Sender: FDA-Public Use
  Company Number: BR-AKORN-42484

PATIENT
  Sex: Female

DRUGS (1)
  1. COSOPT [Suspect]
     Active Substance: DORZOLAMIDE HYDROCHLORIDE\TIMOLOL MALEATE

REACTIONS (5)
  - Intentional product misuse [Unknown]
  - Cataract [Recovered/Resolved]
  - Vision blurred [Not Recovered/Not Resolved]
  - Retinal detachment [Recovered/Resolved]
  - Drug ineffective [Unknown]
